FAERS Safety Report 6222814-8 (Version None)
Quarter: 2009Q2

REPORT INFORMATION
  Report Type: 
  Country: None (occurrence: None)
  Receive Date: 20090611
  Receipt Date: 20090603
  Transmission Date: 20091009
  Serious: Yes (Other)
  Sender: FDA-Public Use
  Company Number: A0789906A

PATIENT
  Sex: Female

DRUGS (1)
  1. AVANDIA [Suspect]
     Indication: DRUG USE FOR UNKNOWN INDICATION
     Dosage: 4MG PER DAY
     Route: 065
     Dates: start: 20090401

REACTIONS (9)
  - AGGRESSION [None]
  - ANGER [None]
  - ASTHENIA [None]
  - DEMENTIA [None]
  - FATIGUE [None]
  - NERVOUSNESS [None]
  - OEDEMA PERIPHERAL [None]
  - SOMNOLENCE [None]
  - TREMOR [None]
